FAERS Safety Report 7035347 (Version 2)
Quarter: 2013Q4

REPORT INFORMATION
  Report Type: Spontaneous
  Country: US (occurrence: None)
  Receive Date: 20090617
  Receipt Date: 20131205
  Transmission Date: 20140711
  Serious: Yes (Other)
  Sender: FDA-Public Use
  Company Number: 2009S1004567

PATIENT
  Age: 71 Year
  Sex: Male

DRUGS (4)
  1. GAS X [Suspect]
     Indication: COLONOSCOPY
     Dosage: 2 IN 24 HOURS
     Route: 048
     Dates: start: 20030609, end: 20030609
  2. DIOVAN HCT (HYDROCHLOROTHIAZIDE, VALSARTAN) [Concomitant]
  3. NORVASC (AMLODIPINE BESILATE) (5 MILLIGRAM) [Concomitant]
  4. SODIUM PHOSPHATE, DIBASIC [Suspect]
     Indication: COLONOSCOPY
     Dosage: 90 ML; TOTAL; PO
     Route: 048
     Dates: start: 200306, end: 200306

REACTIONS (1)
  - Renal failure chronic [None]
